FAERS Safety Report 24990218 (Version 1)
Quarter: 2025Q1

REPORT INFORMATION
  Report Type: Spontaneous
  Country: US (occurrence: None)
  Receive Date: 20250219
  Receipt Date: 20250219
  Transmission Date: 20250408
  Serious: Yes (Life-Threatening, Hospitalization, Other)
  Sender: FDA-CTU
  Company Number: None

PATIENT
  Age: 58 Year
  Sex: Male
  Weight: 90.45 kg

DRUGS (5)
  1. EPCLUSA [Suspect]
     Active Substance: SOFOSBUVIR\VELPATASVIR
     Indication: Hepatitis C
     Dosage: OTHER QUANTITY : 1 TABLET(S);?FREQUENCY : DAILY;?
     Route: 048
     Dates: start: 20250117, end: 20250206
  2. LISINOPRIL [Concomitant]
     Active Substance: LISINOPRIL
  3. FEBUXOSTAT [Concomitant]
     Active Substance: FEBUXOSTAT
  4. ATORVASTATIN [Concomitant]
     Active Substance: ATORVASTATIN
  5. TESTOSTERONE [Concomitant]
     Active Substance: TESTOSTERONE

REACTIONS (9)
  - Nausea [None]
  - Headache [None]
  - Dysgeusia [None]
  - Myocardial infarction [None]
  - Pain in jaw [None]
  - Syncope [None]
  - Loss of consciousness [None]
  - Pain in extremity [None]
  - Hyperhidrosis [None]

NARRATIVE: CASE EVENT DATE: 20250205
